FAERS Safety Report 8229931 (Version 2)
Quarter: 2012Q4

REPORT INFORMATION
  Report Type: 
  Country: US (occurrence: US)
  Receive Date: 20111106
  Receipt Date: 20121107
  Transmission Date: 20130627
  Serious: No
  Sender: FDA-Public Use
  Company Number: US-AMGEN-USASP2011043768

PATIENT
  Age: 63 Year
  Sex: Male

DRUGS (16)
  1. ENBREL [Suspect]
     Indication: PSORIATIC ARTHROPATHY
     Dosage: 50 mg, UNK
     Dates: start: 201103
  2. ENBREL [Suspect]
     Dates: start: 201103
  3. DICLOFENAC [Concomitant]
  4. LIPITOR [Concomitant]
  5. COMBIGAN [Concomitant]
  6. ACTOS [Concomitant]
  7. CELEBREX [Concomitant]
  8. LYRICA [Concomitant]
  9. MAXZIDE [Concomitant]
  10. MUSE [Concomitant]
  11. OMEPRAZOLE [Concomitant]
  12. AMBIEN CR [Concomitant]
  13. AZOPT [Concomitant]
  14. METFORMIN [Concomitant]
  15. DOVONEX [Concomitant]
  16. TACLONEX [Concomitant]

REACTIONS (2)
  - Diabetes mellitus [Unknown]
  - Skin ulcer [Not Recovered/Not Resolved]
